FAERS Safety Report 5101238-0 (Version None)
Quarter: 2006Q3

REPORT INFORMATION
  Report Type: 
  Country: None (occurrence: None)
  Receive Date: 20060911
  Receipt Date: 20060831
  Transmission Date: 20061208
  Serious: Yes (Hospitalization)
  Sender: FDA-Public Use
  Company Number: JP-ROCHE-461602

PATIENT
  Age: 89 Year
  Sex: Female

DRUGS (8)
  1. LUPRAC [Suspect]
     Indication: OSTEOPOROSIS
     Route: 048
  2. ARTIST [Suspect]
     Indication: HYPERTENSION
     Route: 065
     Dates: start: 19920615
  3. PAXIL [Suspect]
     Indication: DEPRESSION
     Route: 048
     Dates: start: 20060311, end: 20060314
  4. PAXIL [Suspect]
     Route: 048
     Dates: start: 20060123, end: 20060310
  5. PAXIL [Suspect]
     Route: 048
     Dates: start: 20060316
  6. ARICEPT [Suspect]
     Indication: MEMORY IMPAIRMENT
     Route: 048
     Dates: start: 20060128
  7. BLOPRESS [Suspect]
     Indication: HYPERTENSION
     Route: 048
     Dates: start: 19920615
  8. ALFAROL [Suspect]
     Indication: OSTEOPOROSIS
     Route: 048

REACTIONS (7)
  - ASPIRATION [None]
  - CARDIAC FAILURE CONGESTIVE [None]
  - CARDIOMEGALY [None]
  - COORDINATION ABNORMAL [None]
  - DEPRESSED LEVEL OF CONSCIOUSNESS [None]
  - PYREXIA [None]
  - SOMNOLENCE [None]
